FAERS Safety Report 10785711 (Version 1)
Quarter: 2015Q1

REPORT INFORMATION
  Report Type: Spontaneous
  Country: JP (occurrence: JP)
  Receive Date: 20150211
  Receipt Date: 20150211
  Transmission Date: 20150721
  Serious: Yes (Death)
  Sender: FDA-Public Use
  Company Number: PHJP2015JP001459

PATIENT
  Age: 61 Year
  Sex: Male

DRUGS (1)
  1. DESFERAL [Suspect]
     Active Substance: DEFEROXAMINE MESYLATE
     Indication: IRON OVERLOAD
     Dosage: 1000 MG, QD
     Route: 030
     Dates: start: 20141222, end: 20141225

REACTIONS (3)
  - Serum ferritin increased [Unknown]
  - Septic shock [Fatal]
  - Myelodysplastic syndrome [None]

NARRATIVE: CASE EVENT DATE: 20141222
